FAERS Safety Report 8552376-1 (Version None)
Quarter: 2012Q3

REPORT INFORMATION
  Report Type: 
  Country: None (occurrence: None)
  Receive Date: 20120723
  Receipt Date: 20120723
  Transmission Date: 20120928
  Serious: Yes (Hospitalization)
  Sender: FDA-Public Use
  Company Number: None

PATIENT
  Sex: Male
  Weight: 72.1 kg

DRUGS (19)
  1. AUGMENTIN '500' [Concomitant]
  2. PACLITAXEL [Suspect]
     Dosage: 365 MG
  3. FOLIC ACID [Concomitant]
  4. NORVASC [Concomitant]
  5. BEVACIZUMAB [Suspect]
     Dosage: 1080 MG
  6. GLIPIZIDE [Concomitant]
  7. LISINOPRIL [Concomitant]
  8. DUONEB [Concomitant]
  9. FLOMAX [Concomitant]
  10. KEPPRA [Concomitant]
  11. MULTI-VITAMIN [Concomitant]
  12. NEULASTA [Concomitant]
  13. SEROQUEL [Concomitant]
  14. CARBOPLATIN [Suspect]
     Dosage: 720 MG
  15. ASPIRIN [Concomitant]
  16. GLUCOSAMINE CHONDROITIN [Concomitant]
  17. MELATONIN [Concomitant]
  18. FISH OIL [Concomitant]
  19. VITAMIN B-12 [Concomitant]

REACTIONS (7)
  - PNEUMONIA [None]
  - ELECTROCARDIOGRAM ST SEGMENT ELEVATION [None]
  - GENERAL PHYSICAL HEALTH DETERIORATION [None]
  - FALL [None]
  - CHEST PAIN [None]
  - EJECTION FRACTION DECREASED [None]
  - CONFUSIONAL STATE [None]
